FAERS Safety Report 14889496 (Version 2)
Quarter: 2018Q2

REPORT INFORMATION
  Report Type: Spontaneous
  Country: US (occurrence: US)
  Receive Date: 20180514
  Receipt Date: 20180614
  Transmission Date: 20180711
  Serious: No
  Sender: FDA-Public Use
  Company Number: US-ASTRAZENECA-2018SE50691

PATIENT
  Sex: Male
  Weight: 103.9 kg

DRUGS (1)
  1. TUDORZA PRESSAIR [Suspect]
     Active Substance: ACLIDINIUM BROMIDE
     Indication: CHRONIC OBSTRUCTIVE PULMONARY DISEASE
     Dosage: 400 MCG 1 INHALATION TWICE A DAY
     Route: 055

REACTIONS (3)
  - Device malfunction [Unknown]
  - Visual acuity reduced [Unknown]
  - Drug dose omission [Unknown]
